FAERS Safety Report 15318846 (Version 1)
Quarter: 2018Q3

REPORT INFORMATION
  Report Type: Spontaneous
  Country: US (occurrence: US)
  Receive Date: 20180819
  Receipt Date: 20180819
  Transmission Date: 20181010
  Serious: Yes (Other)
  Sender: FDA-Public Use
  Company Number: None

PATIENT
  Age: 38 Year
  Sex: Female
  Weight: 67.5 kg

DRUGS (4)
  1. AMOXICILLIN AND CLAVULANATE POTASSIUM [Suspect]
     Active Substance: AMOXICILLIN\CLAVULANATE POTASSIUM
     Indication: SINUSITIS
     Dosage: ?          QUANTITY:20 TABLET(S);?
     Route: 048
     Dates: start: 20180817, end: 20180817
  2. HYDROXYZINE [Concomitant]
     Active Substance: HYDROXYZINE HYDROCHLORIDE
  3. TRAZODONE [Concomitant]
     Active Substance: TRAZODONE HYDROCHLORIDE
  4. ZOMIG [Concomitant]
     Active Substance: ZOLMITRIPTAN

REACTIONS (10)
  - Hypoaesthesia [None]
  - White blood cell count increased [None]
  - Abdominal pain upper [None]
  - Vomiting [None]
  - Confusional state [None]
  - Drug hypersensitivity [None]
  - Paraesthesia [None]
  - Haematochezia [None]
  - Diarrhoea [None]
  - Hyperhidrosis [None]

NARRATIVE: CASE EVENT DATE: 20180817
